FAERS Safety Report 8966493 (Version 1)
Quarter: 2012Q4

REPORT INFORMATION
  Report Type: Report from Study
  Country: US (occurrence: US)
  Receive Date: 20121215
  Receipt Date: 20121215
  Transmission Date: 20130627
  Serious: Yes (Hospitalization)
  Sender: FDA-Public Use
  Company Number: US-US-EMD SERONO, INC.-7181485

PATIENT
  Sex: Female
  Weight: 61 kg

DRUGS (4)
  1. REBIF [Suspect]
     Indication: MULTIPLE SCLEROSIS
     Route: 058
     Dates: start: 20081117
  2. AMANTADINE [Suspect]
     Indication: PRODUCT USED FOR UNKNOWN INDICATION
  3. BYSTOLIC [Concomitant]
     Indication: PRODUCT USED FOR UNKNOWN INDICATION
  4. BACLOFEN [Concomitant]
     Indication: PRODUCT USED FOR UNKNOWN INDICATION

REACTIONS (4)
  - Hallucination [Recovered/Resolved]
  - Urinary tract infection [Recovered/Resolved]
  - Depressed mood [Recovered/Resolved]
  - Hypertension [Unknown]
